FAERS Safety Report 9261471 (Version 1)
Quarter: 2013Q2

REPORT INFORMATION
  Report Type: Spontaneous
  Country: FR (occurrence: FR)
  Receive Date: 20130429
  Receipt Date: 20130429
  Transmission Date: 20140414
  Serious: Yes (Hospitalization)
  Sender: FDA-Public Use
  Company Number: FR-BRISTOL-MYERS SQUIBB COMPANY-18815456

PATIENT
  Age: 96 Year
  Sex: Female

DRUGS (5)
  1. COUMADIN TABS [Suspect]
     Indication: EMBOLISM
     Route: 048
     Dates: start: 201202, end: 20120302
  2. AMOXICILLIN [Suspect]
     Dates: start: 201202
  3. HEPARIN [Suspect]
  4. MOPRAL [Concomitant]
  5. ISOPTINE [Concomitant]

REACTIONS (5)
  - Renal infarct [Unknown]
  - Hypersensitivity [Unknown]
  - Cardiac failure [Unknown]
  - Bronchitis [Unknown]
  - Drug intolerance [Unknown]
